FAERS Safety Report 25718265 (Version 1)
Quarter: 2025Q3

REPORT INFORMATION
  Report Type: Spontaneous
  Country: US (occurrence: US)
  Receive Date: 20250823
  Receipt Date: 20250823
  Transmission Date: 20251021
  Serious: No
  Sender: DR REDDYS
  Company Number: None

PATIENT
  Age: 29 Year
  Sex: Female

DRUGS (3)
  1. OLANZAPINE [Suspect]
     Active Substance: OLANZAPINE
     Indication: Product used for unknown indication
     Dosage: NIGHTLY/TAKING HER PSYCHIATRIC MEDICATIONS INTERMITTENTLY SINCE ARRIVING IN THE USA
  2. ESCITALOPRAM [Concomitant]
     Active Substance: ESCITALOPRAM OXALATE
     Indication: Product used for unknown indication
     Dosage: TAKING HER PSYCHIATRIC MEDICATIONS INTERMITTENTLY SINCE ARRIVING IN THE USA
  3. MIRTAZAPINE [Concomitant]
     Active Substance: MIRTAZAPINE
     Indication: Product used for unknown indication
     Dosage: NIGHTLY/TAKING HER PSYCHIATRIC MEDICATIONS INTERMITTENTLY SINCE ARRIVING IN THE USA

REACTIONS (1)
  - Sedation complication [Unknown]
